FAERS Safety Report 4950378-5 (Version None)
Quarter: 2006Q1

REPORT INFORMATION
  Report Type: 
  Country: None (occurrence: None)
  Receive Date: 20060322
  Receipt Date: 20060310
  Transmission Date: 20060701
  Serious: Yes (Hospitalization)
  Sender: FDA-Public Use
  Company Number: FR-AVENTIS-200610964FR

PATIENT
  Age: 79 Year
  Sex: Male

DRUGS (4)
  1. RILUTEK [Suspect]
     Indication: AMYOTROPHIC LATERAL SCLEROSIS
     Route: 048
     Dates: start: 20050601
  2. XATRAL [Concomitant]
  3. RIVOTRIL [Concomitant]
  4. AMBROXOL [Concomitant]

REACTIONS (2)
  - HEPATITIS B [None]
  - HEPATOMEGALY [None]
